FAERS Safety Report 25114900 (Version 1)
Quarter: 2025Q1

REPORT INFORMATION
  Report Type: Spontaneous
  Country: SE (occurrence: SE)
  Receive Date: 20250324
  Receipt Date: 20250324
  Transmission Date: 20250409
  Serious: Yes (Other)
  Sender: BRACCO
  Company Number: None

PATIENT
  Age: 44 Year
  Sex: Female

DRUGS (3)
  1. IOMERON [Suspect]
     Active Substance: IOMEPROL
     Indication: Computerised tomogram intestine
     Dates: start: 20241015, end: 20241015
  2. DESLORATADINE [Concomitant]
     Active Substance: DESLORATADINE
     Dates: start: 20241015, end: 20241015
  3. PREDNISOLONE [Concomitant]
     Active Substance: PREDNISOLONE
     Dates: start: 20241015, end: 20241015

REACTIONS (4)
  - Rash [Recovered/Resolved]
  - Incorrect route of product administration [Unknown]
  - Paraesthesia oral [Unknown]
  - Pruritus [Unknown]

NARRATIVE: CASE EVENT DATE: 20241015
